FAERS Safety Report 5923743-7 (Version None)
Quarter: 2008Q4

REPORT INFORMATION
  Report Type: 
  Country: None (occurrence: None)
  Receive Date: 20081015
  Receipt Date: 20081006
  Transmission Date: 20090506
  Serious: Yes (Death)
  Sender: FDA-Public Use
  Company Number: MSTR-NO-0810S-0090

PATIENT
  Age: 62 Year
  Sex: Male
  Weight: 53.4 kg

DRUGS (2)
  1. METASTRON [Suspect]
     Indication: METASTATIC PAIN
     Dosage: SINGLE DOSE, I.V.
     Route: 036
     Dates: start: 20080814, end: 20080814
  2. CARBOPLATIN [Suspect]

REACTIONS (3)
  - ALTERED STATE OF CONSCIOUSNESS [None]
  - CACHEXIA [None]
  - DEHYDRATION [None]
